FAERS Safety Report 10102392 (Version 1)
Quarter: 2014Q2

REPORT INFORMATION
  Report Type: Spontaneous
  Country: US (occurrence: US)
  Receive Date: 20140424
  Receipt Date: 20140424
  Transmission Date: 20141212
  Serious: No
  Sender: FDA-Public Use
  Company Number: US-009507513-1403USA006068

PATIENT
  Age: 41 Year
  Sex: Female

DRUGS (9)
  1. CORICIDIN HBP COLD AND FLU [Suspect]
     Indication: MALAISE
     Dosage: UNK, UNKNOWN
     Route: 048
     Dates: start: 2014
  2. CORICIDIN HBP COLD AND FLU [Suspect]
     Indication: NASOPHARYNGITIS
  3. CORICIDIN HBP COLD AND FLU [Suspect]
     Indication: HEADACHE
  4. CORICIDIN HBP COLD AND FLU [Suspect]
     Indication: SINUS HEADACHE
  5. CORICIDIN HBP COLD AND FLU [Suspect]
     Indication: FACIAL PAIN
  6. CORICIDIN HBP COLD AND FLU [Suspect]
     Indication: PAIN IN JAW
  7. CORICIDIN HBP COLD AND FLU [Suspect]
     Indication: EAR PAIN
  8. CORICIDIN HBP COLD AND FLU [Suspect]
     Indication: NASAL CONGESTION
  9. CORICIDIN HBP COLD AND FLU [Suspect]
     Indication: OROPHARYNGEAL PAIN

REACTIONS (1)
  - Drug effect decreased [Unknown]
